FAERS Safety Report 7490759-1 (Version None)
Quarter: 2011Q2

REPORT INFORMATION
  Report Type: 
  Country: None (occurrence: None)
  Receive Date: 20110519
  Receipt Date: 20110517
  Transmission Date: 20111010
  Serious: Yes (Other)
  Sender: FDA-Public Use
  Company Number: US-BAYER-2011-042396

PATIENT
  Sex: Female

DRUGS (1)
  1. KOGENATE FS [Suspect]
     Indication: FACTOR VIII DEFICIENCY
     Dosage: 1000 IU, BID
     Dates: start: 20110501

REACTIONS (3)
  - BRONCHOSPASM [None]
  - DEHYDRATION [None]
  - URINARY TRACT INFECTION [None]
